FAERS Safety Report 15460290 (Version 1)
Quarter: 2018Q4

REPORT INFORMATION
  Report Type: Spontaneous
  Country: IT (occurrence: IT)
  Receive Date: 20181003
  Receipt Date: 20181003
  Transmission Date: 20190204
  Serious: Yes (Other)
  Sender: FDA-Public Use
  Company Number: IT-MYLANLABS-2018M1071909

PATIENT
  Age: 51 Year
  Sex: Female

DRUGS (1)
  1. ZOLEDRONIC ACID [Suspect]
     Active Substance: ZOLEDRONIC ACID
     Indication: BREAST CANCER FEMALE
     Dosage: UNK
     Route: 042

REACTIONS (7)
  - Sinusitis [Recovered/Resolved]
  - Osteonecrosis of jaw [Recovered/Resolved]
  - Pain in jaw [Recovered/Resolved]
  - Exposed bone in jaw [Recovered/Resolved]
  - Gingival swelling [Recovered/Resolved]
  - Rhinorrhoea [Recovered/Resolved]
  - Gingival erythema [Recovered/Resolved]
